FAERS Safety Report 18339053 (Version 1)
Quarter: 2020Q4

REPORT INFORMATION
  Report Type: Spontaneous
  Country: US (occurrence: US)
  Receive Date: 20201002
  Receipt Date: 20201002
  Transmission Date: 20210113
  Serious: Yes (Other)
  Sender: FDA-Public Use
  Company Number: None

PATIENT
  Age: 71 Year
  Sex: Female
  Weight: 56.25 kg

DRUGS (10)
  1. VITAMIN D3 [Concomitant]
     Active Substance: CHOLECALCIFEROL
  2. OLMESARTAN [Concomitant]
     Active Substance: OLMESARTAN
  3. ATENOLOL. [Concomitant]
     Active Substance: ATENOLOL
  4. ALEVE [Concomitant]
     Active Substance: NAPROXEN SODIUM
  5. MAGNESIUM OXIDE. [Concomitant]
     Active Substance: MAGNESIUM OXIDE
  6. CALCIUM 600 [Concomitant]
     Active Substance: CALCIUM
  7. XANAX [Concomitant]
     Active Substance: ALPRAZOLAM
  8. IMATINIB. [Suspect]
     Active Substance: IMATINIB MESYLATE
     Indication: GASTROINTESTINAL STROMAL TUMOUR
     Route: 048
     Dates: start: 20200708
  9. RESTASIS [Concomitant]
     Active Substance: CYCLOSPORINE
  10. GAVISCON [Concomitant]
     Active Substance: ALUMINUM HYDROXIDE\MAGNESIUM CARBONATE

REACTIONS (1)
  - Hepatic enzyme increased [None]

NARRATIVE: CASE EVENT DATE: 20201002
